FAERS Safety Report 4474969-3 (Version None)
Quarter: 2004Q3

REPORT INFORMATION
  Report Type: 
  Country: None (occurrence: None)
  Receive Date: 20040923
  Receipt Date: 20040525
  Transmission Date: 20050211
  Serious: Yes (Hospitalization, Other)
  Sender: FDA-Public Use
  Company Number: USA040157723

PATIENT
  Age: 75 Year
  Sex: Female

DRUGS (8)
  1. FORTEO [Suspect]
     Indication: OSTEOPOROSIS
     Dates: start: 20040201
  2. EVISTA [Suspect]
     Indication: OSTEOPOROSIS
     Dates: start: 20010101
  3. SYNTHROID [Concomitant]
  4. ALLEGRA [Concomitant]
  5. ACTONEL [Concomitant]
  6. AMIEN (ZOLPIDEM TARTRATE) [Concomitant]
  7. PRILOSEC [Concomitant]
  8. CALCIUM [Concomitant]

REACTIONS (8)
  - BACK PAIN [None]
  - BLOOD PRESSURE INCREASED [None]
  - FALL [None]
  - GASTROINTESTINAL DISORDER [None]
  - HIP FRACTURE [None]
  - HIP SURGERY [None]
  - OSTEOPOROSIS [None]
  - SPINAL FRACTURE [None]
